FAERS Safety Report 18262643 (Version 1)
Quarter: 2020Q3

REPORT INFORMATION
  Report Type: Spontaneous
  Country: US (occurrence: US)
  Receive Date: 20200506
  Receipt Date: 20200506
  Transmission Date: 20201103
  Serious: No
  Sender: FDA-Public Use
  Company Number: None

PATIENT
  Age: 8 Decade
  Sex: Male

DRUGS (3)
  1. ARBIDOL [Suspect]
     Active Substance: UMIFENOVIR
     Indication: COVID-19
     Dates: start: 2020
  2. METHYLPREDNISOLONE. [Suspect]
     Active Substance: METHYLPREDNISOLONE
     Indication: COVID-19
     Dates: start: 2020
  3. MOXIFLOXACIN. [Suspect]
     Active Substance: MOXIFLOXACIN
     Indication: COVID-19
     Dates: start: 2020

REACTIONS (10)
  - Supraventricular tachycardia [None]
  - Thrombocytopenia [None]
  - Heart rate increased [None]
  - Irritability [None]
  - Dyspnoea [None]
  - Prothrombin time prolonged [None]
  - Blood pressure increased [None]
  - Disseminated intravascular coagulation [None]
  - Off label use [None]
  - Drug resistance [None]
